FAERS Safety Report 16384905 (Version 2)
Quarter: 2019Q2

REPORT INFORMATION
  Report Type: Spontaneous
  Country: US (occurrence: US)
  Receive Date: 20190603
  Receipt Date: 20190627
  Transmission Date: 20190711
  Serious: No
  Sender: FDA-Public Use
  Company Number: US-MILLICENT HOLDINGS LTD.-MILL20192264

PATIENT
  Age: 55 Year
  Sex: Female

DRUGS (8)
  1. SUPREP BOWEL PREP [Concomitant]
     Active Substance: MAGNESIUM SULFATE\POTASSIUM SULFATE\SODIUM SULFATE
     Indication: COLONOSCOPY
     Dosage: UNKNOWN
     Route: 065
     Dates: start: 201905, end: 201905
  2. RETINOL [Concomitant]
     Active Substance: RETINOL
     Indication: PRODUCT USED FOR UNKNOWN INDICATION
     Dosage: UNKNOWN
     Route: 061
  3. PROGESTERONE. [Concomitant]
     Active Substance: PROGESTERONE
     Indication: PRODUCT USED FOR UNKNOWN INDICATION
     Dosage: UNKNOWN
     Route: 065
  4. VYVANSE [Concomitant]
     Active Substance: LISDEXAMFETAMINE DIMESYLATE
     Indication: PRODUCT USED FOR UNKNOWN INDICATION
     Dosage: UNKNOWN
     Route: 048
  5. THYROID MEDICATION [Concomitant]
     Active Substance: UNSPECIFIED INGREDIENT
     Indication: THYROID DISORDER
     Dosage: UNKNOWN
     Route: 048
  6. ACYCLOVIR. [Concomitant]
     Active Substance: ACYCLOVIR
     Indication: PRODUCT USED FOR UNKNOWN INDICATION
     Dosage: UNKNOWN
     Route: 065
  7. FEMRING [Suspect]
     Active Substance: ESTRADIOL ACETATE
     Dosage: UNKNOWN
     Route: 067
     Dates: start: 201806
  8. FEMRING [Suspect]
     Active Substance: ESTRADIOL ACETATE
     Indication: PRODUCT USED FOR UNKNOWN INDICATION
     Dosage: 0.1
     Route: 067
     Dates: start: 2019

REACTIONS (3)
  - Drug ineffective [Not Recovered/Not Resolved]
  - Device defective [None]
  - Therapeutic product effect decreased [Unknown]

NARRATIVE: CASE EVENT DATE: 201806
